FAERS Safety Report 20103490 (Version 1)
Quarter: 2021Q4

REPORT INFORMATION
  Report Type: Other
  Country: US (occurrence: US)
  Receive Date: 20211123
  Receipt Date: 20211123
  Transmission Date: 20220303
  Serious: No
  Sender: FDA-Public Use
  Company Number: US-UROVANT SCIENCES GMBH-202109-URV-000522

PATIENT
  Age: 55 Year
  Sex: Female
  Weight: 69.388 kg

DRUGS (4)
  1. GEMTESA [Suspect]
     Active Substance: VIBEGRON
     Indication: Micturition urgency
     Dosage: UNK
     Route: 065
     Dates: start: 20210812
  2. GEMTESA [Suspect]
     Active Substance: VIBEGRON
     Indication: Pollakiuria
  3. GEMTESA [Suspect]
     Active Substance: VIBEGRON
     Indication: Nocturia
  4. BIOTENE                            /03475601/ [Concomitant]
     Indication: Product used for unknown indication

REACTIONS (2)
  - Oral pain [Not Recovered/Not Resolved]
  - Dry mouth [Not Recovered/Not Resolved]
